FAERS Safety Report 10082307 (Version 1)
Quarter: 2014Q2

REPORT INFORMATION
  Report Type: Spontaneous
  Country: US (occurrence: None)
  Receive Date: 20140414
  Receipt Date: 20140414
  Transmission Date: 20141212
  Serious: Yes (Life-Threatening, Other)
  Sender: FDA-Public Use
  Company Number: None

PATIENT
  Age: 28 Year
  Sex: Female
  Weight: 90.27 kg

DRUGS (2)
  1. HFA INHALERS ALBUTEROL HFA [Suspect]
     Indication: ASTHMA
     Dosage: 2 PUFFS 4-6 HOURS AS NEEDE INHALATION
  2. HFA INHALERS ALBUTEROL HFA [Suspect]
     Indication: LUNG DISORDER
     Dosage: 2 PUFFS 4-6 HOURS AS NEEDE INHALATION

REACTIONS (2)
  - Drug effect decreased [None]
  - Product substitution issue [None]
